FAERS Safety Report 8302992-7 (Version None)
Quarter: 2012Q2

REPORT INFORMATION
  Report Type: 
  Country: None (occurrence: None)
  Receive Date: 20120420
  Receipt Date: 20120411
  Transmission Date: 20120825
  Serious: Yes (Other)
  Sender: FDA-Public Use
  Company Number: US-RB-035803-11

PATIENT
  Age: 44 Year
  Sex: Female

DRUGS (2)
  1. SUBOXONE [Suspect]
     Indication: PAIN
     Dosage: UNKNOWN
     Route: 065
     Dates: end: 20111215
  2. SUBOXONE [Suspect]
     Indication: PAIN
     Dosage: DOSAGE DETAILS NOT PROVIDED
     Route: 065

REACTIONS (14)
  - DIZZINESS [None]
  - FEELING OF BODY TEMPERATURE CHANGE [None]
  - PYREXIA [None]
  - SUICIDAL IDEATION [None]
  - HYPERHIDROSIS [None]
  - STRESS [None]
  - OFF LABEL USE [None]
  - UNDERDOSE [None]
  - DEPRESSION [None]
  - PAIN [None]
  - DIARRHOEA [None]
  - NAUSEA [None]
  - VOMITING [None]
  - HEADACHE [None]
